FAERS Safety Report 9788465 (Version 2)
Quarter: 2014Q1

REPORT INFORMATION
  Report Type: Spontaneous
  Country: BR (occurrence: BR)
  Receive Date: 20131230
  Receipt Date: 20140102
  Transmission Date: 20141002
  Serious: Yes (Hospitalization)
  Sender: FDA-Public Use
  Company Number: BR-PFIZER INC-2013369564

PATIENT
  Age: 60 Year
  Sex: Male

DRUGS (6)
  1. ATENOLOL [Suspect]
     Indication: BLOOD PRESSURE
     Dosage: 25 MG, 2X/DAY
     Route: 048
     Dates: start: 2009
  2. ATACAND [Suspect]
     Indication: BLOOD PRESSURE
     Dosage: 0.5 DF, 2X/DAY
     Route: 048
     Dates: start: 2009
  3. PREDNISONE [Concomitant]
     Dosage: 5 MG, DAILY
     Route: 048
  4. PROGRAF [Concomitant]
     Indication: RENAL TRANSPLANT
     Dosage: 1 MG, DAILY
     Route: 048
  5. ASPIRINA [Concomitant]
     Dosage: 100 MG, DAILY
     Route: 048
  6. AZATHIOPRINE [Concomitant]
     Dosage: DAILY
     Route: 048

REACTIONS (2)
  - Arteriosclerosis coronary artery [Recovered/Resolved]
  - Off label use [Not Recovered/Not Resolved]
